FAERS Safety Report 10044302 (Version 1)
Quarter: 2014Q1

REPORT INFORMATION
  Report Type: Spontaneous
  Country: AU (occurrence: AU)
  Receive Date: 20140328
  Receipt Date: 20140328
  Transmission Date: 20141002
  Serious: Yes (Hospitalization)
  Sender: FDA-Public Use
  Company Number: AU-ALLERGAN-1405975US

PATIENT
  Age: 38 Year
  Sex: 0

DRUGS (1)
  1. BOTOX [Suspect]
     Indication: VOCAL CORD DISORDER
     Dosage: 2.5 UNITS, SINGLE
     Route: 030

REACTIONS (4)
  - Asthma [Unknown]
  - Dysphonia [Unknown]
  - Dysphagia [Unknown]
  - Off label use [Unknown]
